FAERS Safety Report 16046532 (Version 1)
Quarter: 2019Q2

REPORT INFORMATION
  Report Type: Spontaneous
  Country: US (occurrence: US)
  Receive Date: 20190307
  Receipt Date: 20190307
  Transmission Date: 20190711
  Serious: Yes (Hospitalization)
  Sender: FDA-Public Use
  Company Number: None

PATIENT
  Age: 59 Year
  Sex: Female

DRUGS (3)
  1. HUMIRA [Suspect]
     Active Substance: ADALIMUMAB
     Indication: CROHN^S DISEASE
     Dosage: ?          OTHER FREQUENCY:EVERY 7 DAYS;?
     Route: 058
     Dates: start: 20151010
  2. ASPIRIN, FOSAMAX [Concomitant]
  3. HUMALOG,LANTUS, ATORVASTATIN, LISINOPRIL [Concomitant]

REACTIONS (3)
  - Ill-defined disorder [None]
  - Immune system disorder [None]
  - Pain in extremity [None]

NARRATIVE: CASE EVENT DATE: 20180728
